FAERS Safety Report 6223034-3 (Version None)
Quarter: 2009Q2

REPORT INFORMATION
  Report Type: 
  Country: None (occurrence: None)
  Receive Date: 20090611
  Receipt Date: 20090604
  Transmission Date: 20091009
  Serious: Yes (Hospitalization)
  Sender: FDA-Public Use
  Company Number: US-ABBOTT-09P-163-0578003-00

PATIENT
  Sex: Female
  Weight: 86.26 kg

DRUGS (2)
  1. HUMIRA [Suspect]
     Indication: RHEUMATOID ARTHRITIS
     Route: 058
     Dates: start: 20080501, end: 20090404
  2. HUMIRA [Suspect]
     Dosage: RESTARTED

REACTIONS (5)
  - ARTHRALGIA [None]
  - CHOLELITHIASIS [None]
  - INFLUENZA [None]
  - NAUSEA [None]
  - PANCREATITIS [None]
